FAERS Safety Report 9356390 (Version 1)
Quarter: 2013Q2

REPORT INFORMATION
  Report Type: Spontaneous
  Country: US (occurrence: US)
  Receive Date: 20130619
  Receipt Date: 20130619
  Transmission Date: 20140414
  Serious: Yes (Hospitalization)
  Sender: FDA-Public Use
  Company Number: US-ABBOTT-13P-163-1103982-00

PATIENT
  Sex: Female
  Weight: 90.8 kg

DRUGS (5)
  1. SYNTHROID [Suspect]
     Indication: THYROID DISORDER
     Dates: start: 2010
  2. LEVOXYL [Suspect]
     Indication: THYROID DISORDER
  3. LEVOTHYROXINE SODIUM [Suspect]
     Indication: THYROID DISORDER
  4. LIPITOR [Concomitant]
     Indication: BLOOD CHOLESTEROL ABNORMAL
     Dosage: 10 MG DAILY
  5. JANUVIA [Concomitant]
     Indication: TYPE 2 DIABETES MELLITUS
     Dosage: 50 MG DAILY

REACTIONS (3)
  - Diverticulitis [Not Recovered/Not Resolved]
  - Drug effect incomplete [Unknown]
  - Thyroid disorder [Unknown]
